FAERS Safety Report 8326419-4 (Version None)
Quarter: 2012Q2

REPORT INFORMATION
  Report Type: 
  Country: None (occurrence: None)
  Receive Date: 20120501
  Receipt Date: 20120424
  Transmission Date: 20120825
  Serious: Yes (Hospitalization)
  Sender: FDA-Public Use
  Company Number: FR-MERCK-1204FRA00116

PATIENT
  Age: 84 Year
  Sex: Female
  Weight: 62 kg

DRUGS (8)
  1. BUDESONIDE AND FORMOTEROL FUMARATE [Concomitant]
     Route: 065
  2. ASIAN GINSENG AND MINERALS (UNSPECIFIED) AND VITAMINS (UNSPECIFIED) [Concomitant]
     Route: 065
  3. CANDESARTAN CILEXETIL [Concomitant]
     Route: 065
  4. IVABRADINE HYDROCHLORIDE [Concomitant]
     Route: 065
  5. JANUVIA [Suspect]
     Indication: TYPE 2 DIABETES MELLITUS
     Route: 048
     Dates: end: 20110301
  6. WARFARIN SODIUM [Concomitant]
     Route: 065
  7. LORMETAZEPAM [Concomitant]
     Route: 065
  8. GLYBURIDE [Suspect]
     Indication: TYPE 2 DIABETES MELLITUS
     Route: 048
     Dates: end: 20110301

REACTIONS (1)
  - HYPOGLYCAEMIA [None]
